FAERS Safety Report 6671616-7 (Version None)
Quarter: 2010Q2

REPORT INFORMATION
  Report Type: 
  Country: None (occurrence: None)
  Receive Date: 20100407
  Receipt Date: 20100330
  Transmission Date: 20101027
  Serious: Yes (Hospitalization)
  Sender: FDA-Public Use
  Company Number: US-JNJCH-2010008046

PATIENT
  Age: 19 Month
  Sex: Male

DRUGS (1)
  1. ASPIRIN [Suspect]
     Indication: DRUG USE FOR UNKNOWN INDICATION
     Dosage: TEXT:^TWO PILLS^ UNSPECIFIED
     Route: 048

REACTIONS (5)
  - ASTHMA [None]
  - BREATH SOUNDS ABNORMAL [None]
  - HEART RATE INCREASED [None]
  - THERAPEUTIC AGENT TOXICITY [None]
  - VIRAL UPPER RESPIRATORY TRACT INFECTION [None]
